FAERS Safety Report 9297617 (Version 1)
Quarter: 2013Q2

REPORT INFORMATION
  Report Type: Spontaneous
  Country: US (occurrence: None)
  Receive Date: 20130517
  Receipt Date: 20130517
  Transmission Date: 20140414
  Serious: No
  Sender: FDA-Public Use
  Company Number: None

PATIENT
  Age: 29 Year
  Sex: Female
  Weight: 102.97 kg

DRUGS (1)
  1. ABILIFY [Suspect]
     Indication: SEASONAL AFFECTIVE DISORDER
     Route: 048
     Dates: start: 20121214, end: 20121230

REACTIONS (21)
  - Dizziness [None]
  - Abnormal dreams [None]
  - Vision blurred [None]
  - Constipation [None]
  - Somnolence [None]
  - Headache [None]
  - Dizziness [None]
  - Nausea [None]
  - Fatigue [None]
  - Dyskinesia [None]
  - Tremor [None]
  - Dyskinesia [None]
  - Depression [None]
  - Miosis [None]
  - Mydriasis [None]
  - Swelling face [None]
  - Pollakiuria [None]
  - Rash [None]
  - Pruritus [None]
  - Gait disturbance [None]
  - Condition aggravated [None]
